FAERS Safety Report 13056674 (Version 2)
Quarter: 2017Q1

REPORT INFORMATION
  Report Type: Spontaneous
  Country: US (occurrence: US)
  Receive Date: 20161222
  Receipt Date: 20170112
  Transmission Date: 20170428
  Serious: Yes (Hospitalization, Other)
  Sender: FDA-Public Use
  Company Number: US-ACTELION-A-US2016-147109

PATIENT
  Age: 2 Year
  Sex: Female

DRUGS (7)
  1. KEFLEX [Concomitant]
     Active Substance: CEPHALEXIN
     Dosage: UNK
     Dates: start: 20161212
  2. ALBUTEROL. [Concomitant]
     Active Substance: ALBUTEROL
     Dosage: UNK, PRN
  3. TYVASO [Concomitant]
     Active Substance: TREPROSTINIL
  4. KEPPRA [Concomitant]
     Active Substance: LEVETIRACETAM
     Dosage: 200 MG, BID
     Route: 048
  5. TRACLEER [Suspect]
     Active Substance: BOSENTAN
     Indication: PULMONARY ARTERIAL HYPERTENSION
     Dosage: 15.6 MG, BID
     Route: 048
     Dates: start: 201605
  6. REMODULIN [Concomitant]
     Active Substance: TREPROSTINIL
     Dosage: 36 NG/KG, PER MIN
     Route: 058
     Dates: start: 20160920
  7. SILDENAFIL. [Concomitant]
     Active Substance: SILDENAFIL
     Dosage: 9 MG, TID
     Route: 048
     Dates: start: 20160507

REACTIONS (5)
  - Seizure [Recovered/Resolved]
  - Skin infection [Unknown]
  - Infusion site cellulitis [Recovered/Resolved]
  - Pyrexia [Recovered/Resolved]
  - Therapy non-responder [Unknown]
